FAERS Safety Report 7685346-6 (Version None)
Quarter: 2011Q3

REPORT INFORMATION
  Report Type: 
  Country: None (occurrence: None)
  Receive Date: 20110816
  Receipt Date: 20110804
  Transmission Date: 20111222
  Serious: Yes (Hospitalization)
  Sender: FDA-Public Use
  Company Number: AU-JNJFOC-20110803806

PATIENT
  Sex: Female

DRUGS (2)
  1. REMICADE [Suspect]
     Dosage: ON REMICADE FOR 2 YEARS
     Route: 042
     Dates: end: 20110101
  2. REMICADE [Suspect]
     Indication: CROHN'S DISEASE
     Dosage: ON REMICADE FOR 2 YEARS
     Route: 042
     Dates: start: 20090101

REACTIONS (2)
  - PAIN [None]
  - MALAISE [None]
